FAERS Safety Report 9816989 (Version 2)
Quarter: 2014Q1

REPORT INFORMATION
  Report Type: Spontaneous
  Country: JP (occurrence: JP)
  Receive Date: 20140114
  Receipt Date: 20140204
  Transmission Date: 20141002
  Serious: Yes (Hospitalization)
  Sender: FDA-Public Use
  Company Number: JP-GLAXOSMITHKLINE-B0959479A

PATIENT
  Age: 58 Year
  Sex: Male
  Weight: 51 kg

DRUGS (6)
  1. ZOVIRAX [Suspect]
     Indication: HERPES ZOSTER
     Dosage: 250MG THREE TIMES PER DAY
     Route: 042
     Dates: start: 20131220, end: 20131222
  2. CEFAMEZIN [Suspect]
     Indication: ANTIBIOTIC THERAPY
     Dosage: 1G TWICE PER DAY
     Route: 042
     Dates: start: 20131221, end: 20131222
  3. VOLTAREN [Suspect]
     Indication: ANALGESIC THERAPY
     Dosage: 25MG THREE TIMES PER DAY
     Route: 048
     Dates: start: 20131220, end: 20131222
  4. SELBEX [Concomitant]
     Route: 048
  5. LYRICA [Concomitant]
     Route: 048
  6. NEXIUM [Concomitant]
     Route: 048

REACTIONS (2)
  - Nervous system disorder [Recovering/Resolving]
  - Renal failure acute [Recovered/Resolved]
